FAERS Safety Report 16844036 (Version 1)
Quarter: 2019Q3

REPORT INFORMATION
  Report Type: Report from Study
  Country: US (occurrence: US)
  Receive Date: 20190924
  Receipt Date: 20190924
  Transmission Date: 20191005
  Serious: Yes (Other)
  Sender: FDA-Public Use
  Company Number: US-ROCHE-2418189

PATIENT
  Age: 62 Year
  Sex: Female
  Weight: 49.6 kg

DRUGS (3)
  1. VENETOCLAX. [Suspect]
     Active Substance: VENETOCLAX
     Indication: CHRONIC LYMPHOCYTIC LEUKAEMIA
     Dosage: ON DAYS 1-7 CYCLE 3?MOST RECENT DOSE PRIOR TO SAE ON 18/JUL/2019
     Route: 048
  2. OBINUTUZUMAB. [Suspect]
     Active Substance: OBINUTUZUMAB
     Indication: CHRONIC LYMPHOCYTIC LEUKAEMIA
     Dosage: ON DAY 1, CYCLE 1?LAST DOSE ADMINISTERED PRIOR TO SAE ON 02/MAY/2019
     Route: 042
     Dates: start: 20190418
  3. IBRUTINIB [Suspect]
     Active Substance: IBRUTINIB
     Indication: CHRONIC LYMPHOCYTIC LEUKAEMIA
     Dosage: 1-28, CYCLES 1-19?LAST DOSE ADMINISTERED PRIOR TO SAE ON 18/JUL/2019
     Route: 048
     Dates: start: 20190418

REACTIONS (1)
  - Lymphocyte count decreased [Recovered/Resolved]

NARRATIVE: CASE EVENT DATE: 20190718
